FAERS Safety Report 6366871-7 (Version None)
Quarter: 2009Q3

REPORT INFORMATION
  Report Type: 
  Country: None (occurrence: None)
  Receive Date: 20090921
  Receipt Date: 20090911
  Transmission Date: 20100115
  Serious: Yes (Other)
  Sender: FDA-Public Use
  Company Number: CA-NAPPMUNDI-CAN-2009-0001096

PATIENT
  Age: 50 Year
  Sex: Male

DRUGS (7)
  1. HYDROMORPHONE HCL [Suspect]
     Indication: BACK PAIN
     Dosage: 12 MG, BID
     Route: 048
     Dates: start: 20090801
  2. HYDROMORPHONE HCL [Suspect]
     Indication: BACK PAIN
     Dosage: 4 MG, Q6H PRN
     Route: 048
     Dates: start: 20070101
  3. SERTRALINE HCL [Concomitant]
     Indication: BIPOLAR I DISORDER
     Dosage: 200 MG, DAILY
     Route: 048
     Dates: start: 20020101
  4. FLOMAX                             /01280302/ [Concomitant]
     Indication: DRUG USE FOR UNKNOWN INDICATION
  5. VENLAFAXINE HCL [Concomitant]
     Indication: BIPOLAR I DISORDER
     Dosage: 300 MG, DAILY
     Dates: start: 20070101
  6. WELLBUTRIN [Concomitant]
     Indication: BIPOLAR I DISORDER
     Dosage: 150 MG, BID
     Dates: start: 20060101
  7. IMIPRAMINE [Concomitant]
     Indication: BIPOLAR I DISORDER
     Dosage: 100 MG, DAILY
     Dates: start: 20020101

REACTIONS (1)
  - DYSKINESIA [None]
